APPROVED DRUG PRODUCT: POLYCILLIN
Active Ingredient: AMPICILLIN/AMPICILLIN TRIHYDRATE
Strength: EQ 100MG BASE/ML
Dosage Form/Route: FOR SUSPENSION;ORAL
Application: N050308 | Product #004
Applicant: BRISTOL LABORATORIES INC DIV BRISTOL MYERS CO
Approved: Approved Prior to Jan 1, 1982 | RLD: No | RS: No | Type: DISCN